FAERS Safety Report 14258228 (Version 3)
Quarter: 2018Q2

REPORT INFORMATION
  Report Type: Report from Study
  Country: US (occurrence: US)
  Receive Date: 20171207
  Receipt Date: 20180502
  Transmission Date: 20180711
  Serious: No
  Sender: FDA-Public Use
  Company Number: PHEH2017US038750

PATIENT
  Sex: Female

DRUGS (1)
  1. COSENTYX [Suspect]
     Active Substance: SECUKINUMAB
     Indication: PSORIATIC ARTHROPATHY
     Dosage: 150 MG, ONCE EVERY TWO WEEKS
     Route: 058

REACTIONS (6)
  - Pain [Unknown]
  - Asthma [Unknown]
  - Inappropriate schedule of drug administration [Unknown]
  - Fibromyalgia [Unknown]
  - Cough [Unknown]
  - Lung disorder [Unknown]
